FAERS Safety Report 15931500 (Version 3)
Quarter: 2019Q4

REPORT INFORMATION
  Report Type: Spontaneous
  Country: SK (occurrence: SK)
  Receive Date: 20190207
  Receipt Date: 20191204
  Transmission Date: 20200122
  Serious: Yes (Life-Threatening, Hospitalization, Other)
  Sender: FDA-Public Use
  Company Number: PHHY2019SK027443

PATIENT
  Age: 56 Year
  Sex: Female

DRUGS (1)
  1. METFORMIN [Suspect]
     Active Substance: METFORMIN HYDROCHLORIDE
     Indication: TYPE 2 DIABETES MELLITUS
     Dosage: UNK
     Route: 065

REACTIONS (3)
  - Toxicity to various agents [Recovered/Resolved]
  - Lactic acidosis [Recovering/Resolving]
  - Acute kidney injury [Recovering/Resolving]
